FAERS Safety Report 19169962 (Version 5)
Quarter: 2021Q2

REPORT INFORMATION
  Report Type: Spontaneous
  Country: CA (occurrence: CA)
  Receive Date: 20210422
  Receipt Date: 20210617
  Transmission Date: 20210717
  Serious: Yes (Other)
  Sender: FDA-Public Use
  Company Number: CA-PFIZER INC-2019372071

PATIENT
  Age: 26 Year
  Sex: Female

DRUGS (9)
  1. XELJANZ [Suspect]
     Active Substance: TOFACITINIB CITRATE
     Dosage: 15 MG, DAILY (10 MG AM AND 5 MG PM)
     Route: 048
     Dates: start: 202010, end: 202101
  2. XELJANZ [Suspect]
     Active Substance: TOFACITINIB CITRATE
     Dosage: 10 MG, ALTERNATE DAY (10 MG ALTERNATING WITH 5 MG MORNINGS AND CONTINUE WITH 5 MG EVENING)
     Route: 048
     Dates: start: 202101, end: 20210418
  3. XELJANZ [Suspect]
     Active Substance: TOFACITINIB CITRATE
     Dosage: 10 MG, 2X/DAY
     Route: 048
     Dates: start: 2020, end: 202010
  4. XELJANZ [Suspect]
     Active Substance: TOFACITINIB CITRATE
     Indication: COLITIS ULCERATIVE
     Dosage: 10 MG, 2X/DAY
     Route: 048
     Dates: start: 20190822, end: 201910
  5. XELJANZ [Suspect]
     Active Substance: TOFACITINIB CITRATE
     Dosage: 5 MG, 2X/DAY
     Route: 048
     Dates: start: 201910, end: 2020
  6. PREDNISONE. [Concomitant]
     Active Substance: PREDNISONE
     Dosage: UNK
     Dates: start: 20210316
  7. XELJANZ [Suspect]
     Active Substance: TOFACITINIB CITRATE
     Dosage: 1 DF (10 MG ALT. WITH 5 MG AM, AND 5 MG PM)
     Route: 048
     Dates: start: 202101
  8. XELJANZ [Suspect]
     Active Substance: TOFACITINIB CITRATE
     Dosage: 10MG, 2X/DAY
     Route: 048
     Dates: start: 20210330, end: 20210330
  9. XELJANZ [Suspect]
     Active Substance: TOFACITINIB CITRATE
     Dosage: 15 MG, DAILY (10 MG AM AND 5MG PM)
     Route: 048
     Dates: start: 202010, end: 2020

REACTIONS (11)
  - Chest pain [Recovered/Resolved]
  - Condition aggravated [Not Recovered/Not Resolved]
  - Drug ineffective [Unknown]
  - Chest discomfort [Recovered/Resolved]
  - Product use issue [Unknown]
  - Haemorrhoids [Unknown]
  - Off label use [Unknown]
  - Dyspnoea [Recovered/Resolved]
  - Cryptitis [Unknown]
  - Nasopharyngitis [Not Recovered/Not Resolved]
  - Inflammation [Unknown]

NARRATIVE: CASE EVENT DATE: 2019
